FAERS Safety Report 16263094 (Version 2)
Quarter: 2019Q2

REPORT INFORMATION
  Report Type: Spontaneous
  Country: BR (occurrence: BR)
  Receive Date: 20190502
  Receipt Date: 20190517
  Transmission Date: 20190711
  Serious: Yes (Other)
  Sender: FDA-Public Use
  Company Number: BR-ABBVIE-19P-020-2763570-00

PATIENT
  Sex: Female
  Weight: 58 kg

DRUGS (2)
  1. DEPAKOTE ER [Suspect]
     Active Substance: DIVALPROEX SODIUM
     Route: 048
  2. DEPAKOTE ER [Suspect]
     Active Substance: DIVALPROEX SODIUM
     Indication: MIGRAINE
     Dosage: DAILY DOSE 250 MILLIGRAM, AFTER MEAL;
     Route: 048

REACTIONS (7)
  - Dyspepsia [Not Recovered/Not Resolved]
  - Drug intolerance [Unknown]
  - Poor quality product administered [Unknown]
  - Product taste abnormal [Unknown]
  - Throat irritation [Not Recovered/Not Resolved]
  - Hypertension [Recovering/Resolving]
  - Burning sensation [Unknown]

NARRATIVE: CASE EVENT DATE: 2019
